FAERS Safety Report 11408848 (Version 34)
Quarter: 2019Q3

REPORT INFORMATION
  Report Type: Report from Study
  Country: CA (occurrence: CA)
  Receive Date: 20150823
  Receipt Date: 20190903
  Transmission Date: 20191004
  Serious: Yes (Other)
  Sender: FDA-Public Use
  Company Number: CA-ROCHE-1599373

PATIENT
  Age: 55 Year
  Sex: Female
  Weight: 45 kg

DRUGS (26)
  1. ACTEMRA [Suspect]
     Active Substance: TOCILIZUMAB
     Route: 042
     Dates: start: 20160315
  2. VENTOLIN [Concomitant]
     Active Substance: ALBUTEROL SULFATE
  3. ABILIFY [Concomitant]
     Active Substance: ARIPIPRAZOLE
  4. CORTISONE [Concomitant]
     Active Substance: CORTISONE
  5. TYLENOL WITH CODEINE [Concomitant]
     Active Substance: ACETAMINOPHEN\CODEINE PHOSPHATE
  6. ACTEMRA [Suspect]
     Active Substance: TOCILIZUMAB
     Indication: RHEUMATOID ARTHRITIS
     Route: 042
     Dates: start: 20150527
  7. ECHINACEA [ECHINACEA SPP.] [Concomitant]
  8. MELATONIN [Concomitant]
     Active Substance: MELATONIN
  9. LORAZEPAM. [Concomitant]
     Active Substance: LORAZEPAM
  10. MIRTAZAPINE. [Concomitant]
     Active Substance: MIRTAZAPINE
  11. SEROQUEL [Concomitant]
     Active Substance: QUETIAPINE FUMARATE
  12. ACTEMRA [Suspect]
     Active Substance: TOCILIZUMAB
     Dosage: 20 MG/ML
     Route: 042
     Dates: start: 20170830, end: 20180207
  13. SYNTHROID [Concomitant]
     Active Substance: LEVOTHYROXINE SODIUM
  14. ATROVENT [Concomitant]
     Active Substance: IPRATROPIUM BROMIDE
  15. ESCITALOPRAM [Concomitant]
     Active Substance: ESCITALOPRAM OXALATE
  16. PREDNISONE. [Concomitant]
     Active Substance: PREDNISONE
  17. ACTEMRA [Suspect]
     Active Substance: TOCILIZUMAB
     Route: 042
     Dates: start: 20150501
  18. FUROSEMIDE. [Concomitant]
     Active Substance: FUROSEMIDE
  19. TECTA [Concomitant]
     Active Substance: PANTOPRAZOLE MAGNESIUM
  20. ENBREL [Concomitant]
     Active Substance: ETANERCEPT
  21. OXYCOCET [Concomitant]
     Active Substance: ACETAMINOPHEN\OXYCODONE HYDROCHLORIDE
  22. VITAMIN C [Concomitant]
     Active Substance: ASCORBIC ACID
  23. ADVAIR HFA [Concomitant]
     Active Substance: FLUTICASONE PROPIONATE\SALMETEROL XINAFOATE
  24. CYMBALTA [Concomitant]
     Active Substance: DULOXETINE HYDROCHLORIDE
  25. ZOPICLONE [Concomitant]
     Active Substance: ZOPICLONE
  26. FLAXSEED [Concomitant]
     Active Substance: FLAX SEED

REACTIONS (38)
  - Antipsychotic drug level increased [Unknown]
  - Oxygen saturation decreased [Unknown]
  - Influenza [Not Recovered/Not Resolved]
  - Malaise [Unknown]
  - Fatigue [Not Recovered/Not Resolved]
  - Rheumatoid arthritis [Unknown]
  - Blood pressure diastolic decreased [Unknown]
  - Weight increased [Unknown]
  - Constipation [Not Recovered/Not Resolved]
  - Dizziness [Not Recovered/Not Resolved]
  - Skin laceration [Recovered/Resolved]
  - Ear discomfort [Not Recovered/Not Resolved]
  - Productive cough [Not Recovered/Not Resolved]
  - Diarrhoea [Not Recovered/Not Resolved]
  - Secretion discharge [Not Recovered/Not Resolved]
  - Underweight [Recovered/Resolved]
  - Pain [Not Recovered/Not Resolved]
  - Pain [Unknown]
  - Toxicity to various agents [Unknown]
  - Vomiting [Unknown]
  - Hypotension [Not Recovered/Not Resolved]
  - Pharyngitis [Recovering/Resolving]
  - Blood pressure decreased [Unknown]
  - Ill-defined disorder [Unknown]
  - Hypotension [Not Recovered/Not Resolved]
  - Oedema peripheral [Not Recovered/Not Resolved]
  - Blood pressure diastolic decreased [Unknown]
  - Nasopharyngitis [Not Recovered/Not Resolved]
  - Wound infection [Recovered/Resolved]
  - Burning sensation [Unknown]
  - Oedema [Not Recovered/Not Resolved]
  - Upper respiratory tract infection [Recovered/Resolved]
  - Malaise [Not Recovered/Not Resolved]
  - Nausea [Not Recovered/Not Resolved]
  - Weight decreased [Not Recovered/Not Resolved]
  - Pain in extremity [Not Recovered/Not Resolved]
  - Swelling [Unknown]
  - Clostridium difficile infection [Unknown]

NARRATIVE: CASE EVENT DATE: 20150624
